FAERS Safety Report 6406790-0 (Version None)
Quarter: 2009Q4

REPORT INFORMATION
  Report Type: 
  Country: None (occurrence: None)
  Receive Date: 20091020
  Receipt Date: 20091007
  Transmission Date: 20100525
  Serious: Yes (Disabling)
  Sender: FDA-Public Use
  Company Number: DK-PFIZER INC-2008101431

PATIENT
  Age: 59 Year

DRUGS (4)
  1. SALAZOPYRIN [Suspect]
     Indication: PSORIATIC ARTHROPATHY
     Route: 048
     Dates: start: 20051123, end: 20080401
  2. PARACETAMOL [Concomitant]
     Indication: PAIN
     Dosage: 1000 MG, AS NEEDED
     Route: 048
  3. SPIRON /DEN/ [Concomitant]
     Route: 048
  4. CORODIL [Concomitant]
     Route: 048

REACTIONS (2)
  - AGEUSIA [None]
  - ANOSMIA [None]
